FAERS Safety Report 14950687 (Version 1)
Quarter: 2018Q2

REPORT INFORMATION
  Report Type: Spontaneous
  Country: IT (occurrence: IT)
  Receive Date: 20180530
  Receipt Date: 20180530
  Transmission Date: 20180711
  Serious: Yes (Other)
  Sender: FDA-Public Use
  Company Number: IT-AUROBINDO-AUR-APL-2017-44457

PATIENT
  Age: 68 Year
  Sex: Male

DRUGS (1)
  1. SEVELAMER AUROBINDO [Suspect]
     Active Substance: SEVELAMER
     Indication: PRODUCT USED FOR UNKNOWN INDICATION
     Dosage: 3.2 G, DAILY

REACTIONS (3)
  - Diarrhoea [Unknown]
  - Crystal deposit intestine [Unknown]
  - Colitis [Unknown]
